FAERS Safety Report 4520114-5 (Version None)
Quarter: 2004Q4

REPORT INFORMATION
  Report Type: 
  Country: None (occurrence: None)
  Receive Date: 20041202
  Receipt Date: 20041202
  Transmission Date: 20050328
  Serious: Yes (Hospitalization)
  Sender: FDA-Public Use
  Company Number: None

PATIENT
  Sex: Female
  Weight: 62.5964 kg

DRUGS (11)
  1. GEMZAR [Suspect]
     Indication: PANCREATIC CARCINOMA
     Dosage: 650 MG/M2
     Dates: start: 20040721
  2. GEMZAR [Suspect]
     Indication: PANCREATIC CARCINOMA
     Dosage: 650 MG/M2
     Dates: start: 20040728
  3. GEMZAR [Suspect]
     Indication: PANCREATIC CARCINOMA
     Dosage: 650 MG/M2
     Dates: start: 20040809
  4. CELEBREX [Suspect]
     Indication: PANCREATIC CARCINOMA
     Dosage: 400 MG PO BID
     Route: 048
     Dates: start: 20040721
  5. CELEBREX [Suspect]
     Indication: PANCREATIC CARCINOMA
     Dosage: 400 MG PO BID
     Route: 048
     Dates: start: 20040728
  6. CELEBREX [Suspect]
     Indication: PANCREATIC CARCINOMA
     Dosage: 400 MG PO BID
     Route: 048
     Dates: start: 20040804
  7. DURAGESIC [Concomitant]
  8. HYDROCODONE [Concomitant]
  9. ZOLOFT [Concomitant]
  10. COMPAZINE [Concomitant]
  11. PROTONIX [Concomitant]

REACTIONS (2)
  - ASCITES [None]
  - CONSTIPATION [None]
